FAERS Safety Report 11512355 (Version 1)
Quarter: 2015Q3

REPORT INFORMATION
  Report Type: Report from Study
  Country: GB (occurrence: GB)
  Receive Date: 20150916
  Receipt Date: 20150916
  Transmission Date: 20151125
  Serious: Yes (Hospitalization)
  Sender: FDA-Public Use
  Company Number: GB-ROCHE-1633934

PATIENT
  Age: 58 Year
  Sex: Female
  Weight: 101 kg

DRUGS (4)
  1. CETRIZINE [Concomitant]
     Active Substance: CETIRIZINE HYDROCHLORIDE
     Dosage: AS PER REQUIRED
     Route: 048
  2. LANSOPRAZOLE. [Concomitant]
     Active Substance: LANSOPRAZOLE
     Route: 048
  3. SIMVASTATIN. [Concomitant]
     Active Substance: SIMVASTATIN
     Route: 048
  4. TOCILIZUMAB [Suspect]
     Active Substance: TOCILIZUMAB
     Indication: RHEUMATOID ARTHRITIS
     Route: 065
     Dates: start: 20140723

REACTIONS (6)
  - Pancytopenia [Unknown]
  - Fatigue [Unknown]
  - Immune thrombocytopenic purpura [Unknown]
  - Dry mouth [Unknown]
  - Neutropenia [Unknown]
  - Hot flush [Unknown]
